FAERS Safety Report 4852477-5 (Version None)
Quarter: 2005Q4

REPORT INFORMATION
  Report Type: 
  Country: None (occurrence: None)
  Receive Date: 20051213
  Receipt Date: 20051206
  Transmission Date: 20060501
  Serious: Yes (Other)
  Sender: FDA-Public Use
  Company Number: US-BRISTOL-MYERS SQUIBB COMPANY-13206495

PATIENT
  Age: 7 Year
  Sex: Male

DRUGS (7)
  1. DIDANOSINE [Suspect]
     Indication: HIV INFECTION CDC CATEGORY B3
  2. EFAVIRENZ [Suspect]
     Indication: HIV INFECTION CDC CATEGORY B3
  3. LAMIVUDINE [Suspect]
     Indication: HIV INFECTION CDC CATEGORY B3
  4. ZIDOVUDINE [Suspect]
     Indication: HIV INFECTION CDC CATEGORY B3
  5. NELFINAVIR [Suspect]
     Indication: HIV INFECTION CDC CATEGORY B3
  6. AMPRENAVIR [Suspect]
     Indication: HIV INFECTION CDC CATEGORY B3
  7. LOPINAVIR + RITONAVIR [Suspect]
     Indication: HIV INFECTION CDC CATEGORY B3

REACTIONS (1)
  - PSEUDOMONAL SEPSIS [None]
